FAERS Safety Report 13976281 (Version 1)
Quarter: 2017Q3

REPORT INFORMATION
  Report Type: Report from Study
  Country: JP (occurrence: JP)
  Receive Date: 20170915
  Receipt Date: 20170915
  Transmission Date: 20171128
  Serious: Yes (Other)
  Sender: FDA-Public Use
  Company Number: JP-SUN PHARMACEUTICAL INDUSTRIES LTD-2017RR-149667

PATIENT
  Age: 62 Year
  Sex: Female

DRUGS (18)
  1. PACLITAXEL. [Suspect]
     Active Substance: PACLITAXEL
     Indication: INTESTINAL ADENOCARCINOMA
     Dosage: 5TH-LINE
     Route: 065
  2. 5-FLUOROURACIL [Suspect]
     Active Substance: FLUOROURACIL
     Dosage: 2400 MG/M2, FOR 46 H, EVERY 2 WEEKS, 2ND-LINE
     Route: 042
  3. 5-FLUOROURACIL [Suspect]
     Active Substance: FLUOROURACIL
     Dosage: 2400 MG/M2, FOR 46 H, EVERY 2 WEEKS, 4TH-LINE
     Route: 042
  4. 5-FLUOROURACIL [Suspect]
     Active Substance: FLUOROURACIL
     Indication: INTESTINAL ADENOCARCINOMA
     Dosage: 400 MG/M2, 2ND-LINE
     Route: 040
  5. 5-FLUOROURACIL [Suspect]
     Active Substance: FLUOROURACIL
     Dosage: 400 MG/M2, 3RD-LINE
     Route: 040
  6. BEVACIZUMAB. [Suspect]
     Active Substance: BEVACIZUMAB
     Dosage: 5 MG/KG, EVERY 2 WEEKS, 3RD-LINE
     Route: 065
  7. 5-FLUOROURACIL [Suspect]
     Active Substance: FLUOROURACIL
     Dosage: 2400 MG/M2, FOR 46 H, EVERY 2 WEEKS, 3RD-LINE
     Route: 042
  8. TS-1 [Suspect]
     Active Substance: GIMERACIL\OTERACIL\TEGAFUR
     Indication: INTESTINAL ADENOCARCINOMA
     Dosage: 1ST-LINE
     Route: 065
  9. OXALIPLATIN. [Suspect]
     Active Substance: OXALIPLATIN
     Dosage: 85 MG/M2, 4TH-LINE
     Route: 065
  10. CALCIUM FOLINAT [Suspect]
     Active Substance: LEUCOVORIN CALCIUM
     Dosage: 200 MG/M2, 3RD-LINE
     Route: 065
  11. BEVACIZUMAB. [Suspect]
     Active Substance: BEVACIZUMAB
     Indication: INTESTINAL ADENOCARCINOMA
     Dosage: 2ND-LINE
     Route: 065
  12. OXALIPLATIN. [Suspect]
     Active Substance: OXALIPLATIN
     Indication: INTESTINAL ADENOCARCINOMA
     Dosage: 85 MG/M2, 3RD-LINE
     Route: 065
  13. CISPLATIN. [Suspect]
     Active Substance: CISPLATIN
     Indication: INTESTINAL ADENOCARCINOMA
     Dosage: 60 MG/M2, ON DAY 8, EVERY 5 WEEKS, 1ST-LINE
     Route: 065
  14. CALCIUM FOLINAT [Suspect]
     Active Substance: LEUCOVORIN CALCIUM
     Indication: INTESTINAL ADENOCARCINOMA
     Dosage: 200 MG/M2, 2ND-LINE
     Route: 065
  15. 5-FLUOROURACIL [Suspect]
     Active Substance: FLUOROURACIL
     Dosage: 400 MG/M2, 4TH-LINE
     Route: 040
  16. CALCIUM FOLINAT [Suspect]
     Active Substance: LEUCOVORIN CALCIUM
     Dosage: 200 MG/M2, 4TH-LINE
     Route: 065
  17. IRINOTECAN [Suspect]
     Active Substance: IRINOTECAN
     Indication: INTESTINAL ADENOCARCINOMA
     Dosage: 180 MG/M2, 2ND-LINE
     Route: 065
  18. PANITUMUMAB [Suspect]
     Active Substance: PANITUMUMAB
     Indication: INTESTINAL ADENOCARCINOMA
     Dosage: 4TH-LINE
     Route: 065

REACTIONS (2)
  - Toxicity to various agents [Unknown]
  - Drug effect incomplete [Unknown]
